FAERS Safety Report 4444368-9 (Version None)
Quarter: 2004Q3

REPORT INFORMATION
  Report Type: 
  Country: None (occurrence: None)
  Receive Date: 20040802
  Receipt Date: 20040607
  Transmission Date: 20050211
  Serious: No
  Sender: FDA-Public Use
  Company Number: 2004-118288-NL

PATIENT
  Age: 23 Year
  Sex: Female
  Weight: 68.2 kg

DRUGS (1)
  1. NUVARING [Suspect]
     Indication: AMENORRHOEA
     Dosage: DF DAILY VAGINAL
     Route: 067
     Dates: start: 20040401, end: 20040601

REACTIONS (7)
  - AMENORRHOEA [None]
  - DEVICE FAILURE [None]
  - MALAISE [None]
  - MENORRHAGIA [None]
  - METRORRHAGIA [None]
  - NAUSEA [None]
  - VAGINAL CONTRACEPTIVE DEVICE EXPELLED [None]
